FAERS Safety Report 9509609 (Version 1)
Quarter: 2013Q3

REPORT INFORMATION
  Report Type: Spontaneous
  Country: US (occurrence: US)
  Receive Date: 20130909
  Receipt Date: 20130909
  Transmission Date: 20140515
  Serious: No
  Sender: FDA-Public Use
  Company Number: US-BRISTOL-MYERS SQUIBB COMPANY-18911214

PATIENT
  Age: 22 Year
  Sex: Female

DRUGS (3)
  1. ABILIFY [Suspect]
     Indication: ASPERGER^S DISORDER
  2. ABILIFY [Suspect]
     Indication: PSYCHOTIC DISORDER
  3. ABILIFY [Suspect]
     Indication: ANGER

REACTIONS (2)
  - Dyskinesia [Recovered/Resolved]
  - Resting tremor [Recovered/Resolved]
